FAERS Safety Report 7309040-6 (Version None)
Quarter: 2011Q1

REPORT INFORMATION
  Report Type: 
  Country: None (occurrence: None)
  Receive Date: 20110211
  Receipt Date: 20110128
  Transmission Date: 20110831
  Serious: Yes (Life-Threatening, Hospitalization, Other)
  Sender: FDA-Public Use
  Company Number: 2011P1004285

PATIENT
  Age: 37 Year
  Sex: Female

DRUGS (8)
  1. FENTANYL [Suspect]
     Indication: ANALGESIC THERAPY
     Dosage: 75 MCG;X1;IV
     Route: 042
     Dates: start: 20101214, end: 20101214
  2. LIDOCAINE [Suspect]
     Indication: ANALGESIC THERAPY
     Dosage: 10 MG;X1;IV
     Route: 042
     Dates: start: 20101214, end: 20101214
  3. SUXAMETHONIUM (NO PREF. NAME) [Suspect]
     Indication: MUSCLE RELAXANT THERAPY
     Dosage: 75 MG;X1;IV
     Route: 042
     Dates: start: 20101214, end: 20101214
  4. CODEINE [Concomitant]
  5. MIDAZOLAM (NO PREF. NAME) [Suspect]
     Indication: SEDATION
     Dosage: 2 MG;X1;IV
     Route: 042
     Dates: start: 20101214, end: 20101214
  6. PROPOFOL [Suspect]
     Indication: ANAESTHESIA
     Dosage: 200 MG;X1;IV
     Route: 042
     Dates: start: 20101214, end: 20101214
  7. PARACETAMOL [Concomitant]
  8. PREV MEDS [Concomitant]

REACTIONS (5)
  - OEDEMA [None]
  - CIRCULATORY COLLAPSE [None]
  - BRONCHOSPASM [None]
  - ANAPHYLACTIC REACTION [None]
  - TRYPTASE INCREASED [None]
